FAERS Safety Report 17207498 (Version 1)
Quarter: 2019Q4

REPORT INFORMATION
  Report Type: Report from Study
  Country: NL (occurrence: NL)
  Receive Date: 20191227
  Receipt Date: 20191227
  Transmission Date: 20200122
  Serious: Yes (Other)
  Sender: FDA-Public Use
  Company Number: NL-TEVA-2019-NL-1157256

PATIENT
  Age: 53 Year
  Sex: Female

DRUGS (8)
  1. HYDROXYCHLOROQUINE [Concomitant]
     Active Substance: HYDROXYCHLOROQUINE
     Dosage: 200MG, 1X/D
     Dates: start: 20180926
  2. DICLOFENAC [Concomitant]
     Active Substance: DICLOFENAC
     Dosage: 75MG, ZN
     Dates: start: 20170501
  3. HCT 1DD 12,5MG. LISINOPRIL 1DD20MG. SIMVASTATINE 1DD40MG. [Concomitant]
     Dosage: 1DD 12,5MG, 12 MG PER DAY
  4. SIMVASTATINE [Concomitant]
     Active Substance: SIMVASTATIN
     Dosage: 1DD40MG.
  5. SULFASALAZINE. [Suspect]
     Active Substance: SULFASALAZINE
     Indication: RHEUMATOID ARTHRITIS
     Dosage: 1000MG, 2X/D
     Route: 065
     Dates: start: 20190412, end: 20190521
  6. PCM [Concomitant]
     Dosage: 3 X 1000 MG ZN,
  7. OMEPRAZOL 20 MG [Concomitant]
     Active Substance: OMEPRAZOLE
  8. LISINOPRIL. [Concomitant]
     Active Substance: LISINOPRIL
     Dosage: 1DD 20MG

REACTIONS (1)
  - Unresponsive to stimuli [Recovered/Resolved]

NARRATIVE: CASE EVENT DATE: 20190521
